FAERS Safety Report 5460933-4 (Version None)
Quarter: 2007Q3

REPORT INFORMATION
  Report Type: 
  Country: None (occurrence: None)
  Receive Date: 20070810
  Receipt Date: 20061229
  Transmission Date: 20080115
  Serious: Yes (Other)
  Sender: FDA-Public Use
  Company Number: 200615744BWH

PATIENT
  Age: 23 Month
  Sex: Female
  Weight: 14 kg

DRUGS (8)
  1. TRASYLOL [Suspect]
     Indication: SURGERY
     Dosage: 1 ML, ONCE, INTRAVENOUS; 60 ML, INTRAVENOUS
     Route: 042
     Dates: start: 20060926
  2. TRASYLOL [Suspect]
     Indication: SURGERY
     Dosage: 1 ML, ONCE, INTRAVENOUS; 60 ML, INTRAVENOUS
     Route: 042
     Dates: start: 20060926
  3. SEVOFLURANE [Concomitant]
  4. PANCURONIUM [Concomitant]
  5. FENTANYL [Concomitant]
  6. REGLAN [Concomitant]
  7. LACTATED RINGER'S [Concomitant]
  8. NEOSTIGMINE [Concomitant]

REACTIONS (3)
  - HYPOTENSION [None]
  - OXYGEN SATURATION DECREASED [None]
  - URTICARIA [None]
